FAERS Safety Report 20060685 (Version 2)
Quarter: 2021Q4

REPORT INFORMATION
  Report Type: Spontaneous
  Country: US (occurrence: US)
  Receive Date: 20211112
  Receipt Date: 20211222
  Transmission Date: 20220303
  Serious: Yes (Other)
  Sender: FDA-Public Use
  Company Number: US-CIPLA LTD.-2021US07380

PATIENT

DRUGS (14)
  1. DOLUTEGRAVIR [Suspect]
     Active Substance: DOLUTEGRAVIR
     Indication: HIV infection
     Dosage: UNK
     Route: 064
  2. DOLUTEGRAVIR [Suspect]
     Active Substance: DOLUTEGRAVIR
     Dosage: UNK, AT AGE 10 WEEKS
     Route: 048
  3. DOLUTEGRAVIR [Suspect]
     Active Substance: DOLUTEGRAVIR
     Dosage: UNK, AT AGE 5 MONTHS
     Route: 065
  4. ZIDOVUDINE [Suspect]
     Active Substance: ZIDOVUDINE
     Indication: Prophylaxis
     Dosage: UNK
     Route: 064
  5. ZIDOVUDINE [Suspect]
     Active Substance: ZIDOVUDINE
     Dosage: UNK, (DAY OF LIFE (DOL) 2)
     Route: 065
  6. ABACAVIR [Suspect]
     Active Substance: ABACAVIR
     Indication: HIV infection
     Dosage: UNK
     Route: 064
  7. ABACAVIR [Suspect]
     Active Substance: ABACAVIR
     Dosage: UNK, AT AGE 10 WEEKS
     Route: 065
  8. LAMIVUDINE [Suspect]
     Active Substance: LAMIVUDINE
     Indication: Prophylaxis
     Dosage: UNK, (DAY OF LIFE (DOL) 2)
     Route: 065
  9. LAMIVUDINE [Suspect]
     Active Substance: LAMIVUDINE
     Indication: HIV infection
     Dosage: UNK, AT AGE 10 WEEKS
     Route: 065
  10. LAMIVUDINE [Suspect]
     Active Substance: LAMIVUDINE
     Dosage: UNK, AT AGE 5 MONTHS
     Route: 065
  11. NEVIRAPINE [Suspect]
     Active Substance: NEVIRAPINE
     Indication: Prophylaxis
     Dosage: UNK, (DAY OF LIFE (DOL) 2)
     Route: 065
  12. EMTRICITABINE\TENOFOVIR [Suspect]
     Active Substance: EMTRICITABINE\TENOFOVIR
     Dosage: UNK
     Route: 064
  13. BICTEGRAVIR [Suspect]
     Active Substance: BICTEGRAVIR
     Dosage: UNK
     Route: 064
  14. ELVITEGRAVIR [Suspect]
     Active Substance: ELVITEGRAVIR
     Dosage: UNK
     Route: 064

REACTIONS (4)
  - Premature baby [Unknown]
  - Multiple-drug resistance [Unknown]
  - Gastrooesophageal reflux disease [Recovered/Resolved]
  - Foetal exposure during pregnancy [Unknown]
